FAERS Safety Report 5358885-0 (Version None)
Quarter: 2007Q2

REPORT INFORMATION
  Report Type: 
  Country: None (occurrence: None)
  Receive Date: 20070615
  Receipt Date: 20070606
  Transmission Date: 20071010
  Serious: Yes (Hospitalization, Other)
  Sender: FDA-Public Use
  Company Number: CA-ABBOTT-07P-028-0370945-00

PATIENT
  Sex: Female
  Weight: 89.438 kg

DRUGS (1)
  1. MAVIK [Suspect]
     Indication: HYPERTENSION
     Route: 048

REACTIONS (1)
  - NEOPLASM MALIGNANT [None]
